FAERS Safety Report 25905749 (Version 2)
Quarter: 2025Q4

REPORT INFORMATION
  Report Type: Spontaneous
  Country: US (occurrence: US)
  Receive Date: 20251010
  Receipt Date: 20251231
  Transmission Date: 20260118
  Serious: No
  Sender: ABBVIE
  Company Number: US-ABBVIE-6487887

PATIENT
  Sex: Female

DRUGS (1)
  1. ARMOUR THYROID [Suspect]
     Active Substance: THYROID, PORCINE
     Indication: Hypothyroidism
     Route: 048

REACTIONS (5)
  - Rash pustular [Unknown]
  - Suspected counterfeit product [Unknown]
  - Drug hypersensitivity [Unknown]
  - Illness [Unknown]
  - Heart rate decreased [Unknown]
